FAERS Safety Report 11709739 (Version 2)
Quarter: 2015Q4

REPORT INFORMATION
  Report Type: Spontaneous
  Country: US (occurrence: US)
  Receive Date: 20151104
  Receipt Date: 20151110
  Transmission Date: 20160304
  Serious: No
  Sender: FDA-Public Use
  Company Number: US-ELI_LILLY_AND_COMPANY-US201107007717

PATIENT
  Sex: Female

DRUGS (1)
  1. FORTEO [Suspect]
     Active Substance: TERIPARATIDE
     Indication: OSTEOPOROSIS
     Dosage: UNK

REACTIONS (11)
  - Injection site rash [Unknown]
  - Sleep disorder due to a general medical condition [Not Recovered/Not Resolved]
  - Injection site pruritus [Unknown]
  - Pruritus generalised [Recovered/Resolved]
  - Heart rate increased [Unknown]
  - Anxiety [Not Recovered/Not Resolved]
  - Palpitations [Unknown]
  - Injection site erythema [Recovered/Resolved]
  - Headache [Not Recovered/Not Resolved]
  - Fear of disease [Unknown]
  - Contusion [Unknown]
